FAERS Safety Report 13667768 (Version 2)
Quarter: 2017Q3

REPORT INFORMATION
  Report Type: Spontaneous
  Country: GB (occurrence: GB)
  Receive Date: 20170620
  Receipt Date: 20170811
  Transmission Date: 20171127
  Serious: Yes (Hospitalization, Other)
  Sender: FDA-Public Use
  Company Number: GB-ACCORD-052664

PATIENT
  Age: 65 Year
  Sex: Male

DRUGS (3)
  1. RAMIPRIL. [Suspect]
     Active Substance: RAMIPRIL
     Indication: BLOOD PRESSURE ABNORMAL
  2. INSULIN PORCINE [Concomitant]
     Active Substance: INSULIN PORK\INSULIN PURIFIED PORK
     Indication: TYPE 1 DIABETES MELLITUS
     Dates: start: 1979, end: 1985
  3. RAMIPRIL. [Suspect]
     Active Substance: RAMIPRIL
     Indication: CARDIOVASCULAR EVENT PROPHYLAXIS
     Dates: start: 2002, end: 20170526

REACTIONS (9)
  - Balance disorder [Recovering/Resolving]
  - Fall [Recovering/Resolving]
  - Neuropathy peripheral [Recovering/Resolving]
  - Osteomyelitis [Recovering/Resolving]
  - Lower limb fracture [Recovering/Resolving]
  - Otitis externa [Recovering/Resolving]
  - Electrolyte imbalance [Unknown]
  - Muscle spasms [Recovering/Resolving]
  - Nasal congestion [Recovering/Resolving]

NARRATIVE: CASE EVENT DATE: 201602
